FAERS Safety Report 5212564-9 (Version None)
Quarter: 2007Q1

REPORT INFORMATION
  Report Type: 
  Country: None (occurrence: None)
  Receive Date: 20070118
  Receipt Date: 20070108
  Transmission Date: 20070707
  Serious: Yes (Other)
  Sender: FDA-Public Use
  Company Number: GB-PFIZER INC-2006150116

PATIENT
  Age: 41 Year
  Sex: Male
  Weight: 95.3 kg

DRUGS (1)
  1. LYRICA [Suspect]
     Route: 048

REACTIONS (4)
  - AGGRESSION [None]
  - HEADACHE [None]
  - LOSS OF CONSCIOUSNESS [None]
  - MEMORY IMPAIRMENT [None]
